FAERS Safety Report 11326250 (Version 1)
Quarter: 2015Q3

REPORT INFORMATION
  Report Type: Spontaneous
  Country: CN (occurrence: None)
  Receive Date: 20150729
  Receipt Date: 20150729
  Transmission Date: 20151125
  Serious: Yes (Hospitalization, Disabling)
  Sender: FDA-Public Use
  Company Number: CN-2015VAL000492

PATIENT
  Age: 85 Year
  Sex: Female
  Weight: 40 kg

DRUGS (4)
  1. BAYASPIRIN (ACETYLSALICYLIC ACID) (ACETYLSALICYLIC ACID) [Suspect]
     Active Substance: ASPIRIN
     Indication: COAGULOPATHY
     Route: 048
     Dates: start: 20141228, end: 20150123
  2. CRESTOR [Suspect]
     Active Substance: ROSUVASTATIN CALCIUM
     Indication: LIPIDS ABNORMAL
     Route: 048
     Dates: start: 20141228, end: 20150123
  3. LOTENSIN [Suspect]
     Active Substance: BENAZEPRIL HYDROCHLORIDE
     Indication: CARDIAC FAILURE
     Route: 048
     Dates: start: 20141228, end: 20150123
  4. SODIUM CHLORIDE. [Concomitant]
     Active Substance: SODIUM CHLORIDE

REACTIONS (2)
  - Lung infection [None]
  - Renal impairment [None]

NARRATIVE: CASE EVENT DATE: 20150121
